FAERS Safety Report 5046894-0 (Version None)
Quarter: 2006Q2

REPORT INFORMATION
  Report Type: 
  Country: None (occurrence: None)
  Receive Date: 20060628
  Receipt Date: 20060622
  Transmission Date: 20061013
  Serious: Yes (Other)
  Sender: FDA-Public Use
  Company Number: GBWYE771723JUN06

PATIENT
  Sex: 0

DRUGS (1)
  1. EFFEXOR XR [Suspect]
     Dosage: 150MG TRANSPLACENTAL
     Route: 064
     Dates: end: 20051019

REACTIONS (4)
  - CLEFT PALATE [None]
  - CONGENITAL ANOMALY [None]
  - DRUG EXPOSURE DURING PREGNANCY [None]
  - LOW SET EARS [None]
